FAERS Safety Report 18697095 (Version 1)
Quarter: 2021Q1

REPORT INFORMATION
  Report Type: Spontaneous
  Country: US (occurrence: US)
  Receive Date: 20210104
  Receipt Date: 20210104
  Transmission Date: 20210419
  Serious: Yes (Other)
  Sender: FDA-Public Use
  Company Number: US-TEVA-2020-US-1863237

PATIENT
  Age: 72 Year
  Sex: Male

DRUGS (6)
  1. OMADACYCLINE. [Suspect]
     Active Substance: OMADACYCLINE
     Indication: MYCOBACTERIUM ABSCESSUS INFECTION
     Dosage: 450 MILLIGRAM DAILY; LOADING DOSE FOR 2 DAYS
     Route: 048
  2. CLOFAZIMINE [Concomitant]
     Active Substance: CLOFAZIMINE
     Indication: MYCOBACTERIUM ABSCESSUS INFECTION
     Route: 048
  3. AMIKACIN. [Suspect]
     Active Substance: AMIKACIN
     Indication: MYCOBACTERIUM ABSCESSUS INFECTION
     Route: 065
  4. OMADACYCLINE. [Suspect]
     Active Substance: OMADACYCLINE
     Dosage: 300 MILLIGRAM DAILY;
     Route: 048
  5. TEDIZOLID [Suspect]
     Active Substance: TEDIZOLID
     Indication: MYCOBACTERIUM ABSCESSUS INFECTION
     Route: 048
  6. IMIPENEM [Concomitant]
     Active Substance: IMIPENEM
     Indication: MYCOBACTERIUM ABSCESSUS INFECTION
     Route: 065

REACTIONS (5)
  - Off label use [Unknown]
  - Deafness [Unknown]
  - Fatigue [Recovering/Resolving]
  - Dizziness [Unknown]
  - Renal impairment [Unknown]
